FAERS Safety Report 5174278-3 (Version None)
Quarter: 2006Q4

REPORT INFORMATION
  Report Type: 
  Country: None (occurrence: None)
  Receive Date: 20061206
  Receipt Date: 20061127
  Transmission Date: 20070319
  Serious: Yes (Death)
  Sender: FDA-Public Use
  Company Number: 231350

PATIENT
  Age: 41 Year
  Sex: Female

DRUGS (19)
  1. RITUXIMAB (RITUXIMAB) CONC FOR SOLUTION FOR INFUSION [Suspect]
     Indication: RHEUMATOID ARTHRITIS
     Dosage: 1000 MG, DAYS 1+15, INTRAVENOUS
     Route: 042
     Dates: start: 20041020
  2. METHYLPREDNISOLONE [Suspect]
     Indication: RHEUMATOID ARTHRITIS
     Dosage: 100 MG, DAYS 1+15, INTRAVENOUS
     Route: 042
     Dates: start: 20041020
  3. PREDNISONE TAB [Suspect]
     Indication: RHEUMATOID ARTHRITIS
     Dosage: SEE IMAGE
     Dates: start: 20041020
  4. PREDNISONE TAB [Suspect]
     Indication: RHEUMATOID ARTHRITIS
     Dosage: SEE IMAGE
     Dates: start: 20041020
  5. METHOTREXATE [Concomitant]
  6. NAPROXEN [Concomitant]
  7. FOLIC ACID [Concomitant]
  8. TYLENOL #4 (ACETAMINOPHEN, CODEINE PHOSPHATE) [Concomitant]
  9. LORTAB [Concomitant]
  10. DARVOCET-N 100 (ACETAMINOPHEN, PROPOXYPHENE NAPSYLATE) [Concomitant]
  11. OXYCODONE HCL [Concomitant]
  12. SYNTHROID [Concomitant]
  13. IRON (IRON NOS) [Concomitant]
  14. MULTIVITAMIN (MULTIVITAMINS NOS) [Concomitant]
  15. PAXIL [Concomitant]
  16. ASPIRIN [Concomitant]
  17. SOMA [Concomitant]
  18. PEPCID AC [Concomitant]
  19. CLARITIN [Concomitant]

REACTIONS (13)
  - BLOOD CHOLESTEROL INCREASED [None]
  - BLOOD GLUCOSE INCREASED [None]
  - CARDIAC ARREST [None]
  - CORONARY ARTERY DISEASE [None]
  - NEUTROPHIL COUNT INCREASED [None]
  - PAIN IN EXTREMITY [None]
  - PERICARDITIS CONSTRICTIVE [None]
  - PERIPHERAL COLDNESS [None]
  - PERIPHERAL EMBOLISM [None]
  - PLATELET COUNT INCREASED [None]
  - PULSE ABSENT [None]
  - THROMBOSIS [None]
  - WHITE BLOOD CELL COUNT INCREASED [None]
